FAERS Safety Report 14739201 (Version 1)
Quarter: 2018Q2

REPORT INFORMATION
  Report Type: Spontaneous
  Country: JP (occurrence: JP)
  Receive Date: 20180410
  Receipt Date: 20180410
  Transmission Date: 20180711
  Serious: Yes (Hospitalization)
  Sender: FDA-Public Use
  Company Number: JP-ABBVIE-17K-087-2147768-00

PATIENT
  Age: 71 Year
  Sex: Female

DRUGS (1)
  1. DUODOPA [Suspect]
     Active Substance: CARBIDOPA\LEVODOPA
     Indication: PARKINSON^S DISEASE
     Route: 050

REACTIONS (9)
  - Device dislocation [Unknown]
  - Device issue [Unknown]
  - Device kink [Unknown]
  - Fracture [Unknown]
  - Fall [Unknown]
  - Abdominal pain lower [Unknown]
  - Device occlusion [Unknown]
  - Device colour issue [Unknown]
  - Device alarm issue [Unknown]
